FAERS Safety Report 4398900-4 (Version None)
Quarter: 2004Q2

REPORT INFORMATION
  Report Type: 
  Country: None (occurrence: None)
  Receive Date: 20040621
  Receipt Date: 20040213
  Transmission Date: 20050107
  Serious: Yes (Death)
  Sender: FDA-Public Use
  Company Number: USA-2003-0007035

PATIENT
  Age: 47 Year
  Sex: Female
  Weight: 148.1 kg

DRUGS (6)
  1. OXYCODONE HCL [Suspect]
  2. COCAINE (COCAINE) [Suspect]
  3. ACETAMINOPHEN [Suspect]
  4. CARISOPRODOL [Suspect]
  5. MEPROBAMATE [Suspect]
  6. CAFFEINE (CAFFEINE) [Suspect]

REACTIONS (2)
  - ACCIDENTAL OVERDOSE [None]
  - RESPIRATORY FAILURE [None]
